FAERS Safety Report 9059651 (Version 1)
Quarter: 2013Q2

REPORT INFORMATION
  Report Type: Spontaneous
  Country: US (occurrence: None)
  Receive Date: 20130206
  Receipt Date: 20130206
  Transmission Date: 20140414
  Serious: Yes (Other)
  Sender: FDA-Public Use
  Company Number: None

PATIENT
  Age: 63 Year
  Sex: Female
  Weight: 73.66 kg

DRUGS (6)
  1. ALISERTIB [Suspect]
     Indication: METASTATIC MALIGNANT MELANOMA
     Dates: start: 20121210, end: 20121217
  2. PROZAC [Concomitant]
  3. TRAZODONE [Concomitant]
  4. NORVASC [Concomitant]
  5. TOPROL XL [Concomitant]
  6. MAGIC MOUTHWASH [Concomitant]

REACTIONS (1)
  - Pulmonary embolism [None]
